FAERS Safety Report 4530079-8 (Version None)
Quarter: 2004Q4

REPORT INFORMATION
  Report Type: 
  Country: None (occurrence: None)
  Receive Date: 20041215
  Receipt Date: 20041203
  Transmission Date: 20050328
  Serious: Yes (Other)
  Sender: FDA-Public Use
  Company Number: 02100-USA-04-0386

PATIENT
  Age: 57 Year
  Sex: Male

DRUGS (1)
  1. PLETAL [Suspect]
     Indication: INTERMITTENT CLAUDICATION
     Dosage: 100 MG DAILY, ORAL
     Route: 048
     Dates: start: 20040101, end: 20041109

REACTIONS (2)
  - POST PROCEDURAL HAEMORRHAGE [None]
  - PUNCTURE SITE HAEMORRHAGE [None]
